FAERS Safety Report 4986537-5 (Version None)
Quarter: 2006Q1

REPORT INFORMATION
  Report Type: 
  Country: None (occurrence: None)
  Receive Date: 20060309
  Receipt Date: 20050417
  Transmission Date: 20060701
  Serious: Yes (Other)
  Sender: FDA-Public Use
  Company Number: 401508

PATIENT

DRUGS (2)
  1. ACCUTANE [Suspect]
     Indication: ACNE
     Dosage: 20 MG ORAL
     Route: 048
     Dates: start: 20040713, end: 20041115
  2. ORTHO TRI-CYCLEN [Concomitant]

REACTIONS (1)
  - ABORTION SPONTANEOUS [None]
